FAERS Safety Report 5372117-9 (Version None)
Quarter: 2007Q2

REPORT INFORMATION
  Report Type: 
  Country: None (occurrence: None)
  Receive Date: 20070627
  Receipt Date: 20070622
  Transmission Date: 20071010
  Serious: Yes (Hospitalization)
  Sender: FDA-Public Use
  Company Number: DE-ASTRAZENECA-2007PK01250

PATIENT
  Age: 55 Year
  Sex: Female

DRUGS (16)
  1. SEROQUEL [Suspect]
     Dosage: SINCE APPROXIMATELY ONE YEAR
     Route: 048
     Dates: end: 20070107
  2. CLOZAPINE [Suspect]
     Route: 048
     Dates: start: 20061213, end: 20061213
  3. CLOZAPINE [Suspect]
     Route: 048
     Dates: start: 20061214, end: 20061214
  4. CLOZAPINE [Suspect]
     Route: 048
     Dates: start: 20061215, end: 20061215
  5. CLOZAPINE [Suspect]
     Route: 048
     Dates: start: 20061216, end: 20061216
  6. CLOZAPINE [Suspect]
     Route: 048
     Dates: start: 20061217, end: 20061217
  7. CLOZAPINE [Suspect]
     Route: 048
     Dates: start: 20061218, end: 20061218
  8. CLOZAPINE [Suspect]
     Route: 048
     Dates: start: 20061219, end: 20061219
  9. CLOZAPINE [Suspect]
     Route: 048
     Dates: start: 20061220, end: 20061220
  10. CLOZAPINE [Suspect]
     Route: 048
     Dates: start: 20061221, end: 20061226
  11. CLOZAPINE [Suspect]
     Route: 048
     Dates: start: 20061227, end: 20070116
  12. CITALOPRAM HYDROBROMIDE [Concomitant]
     Route: 048
  13. LISINOPRIL [Concomitant]
     Route: 048
  14. ESIDRIX [Concomitant]
     Route: 048
  15. NOCTAMID [Concomitant]
     Route: 048
     Dates: end: 20070114
  16. GASTROZEPIN [Concomitant]
     Route: 048
     Dates: start: 20061218, end: 20070122

REACTIONS (1)
  - EOSINOPHILIA [None]
